FAERS Safety Report 4502152-1 (Version None)
Quarter: 2004Q4

REPORT INFORMATION
  Report Type: 
  Country: None (occurrence: None)
  Receive Date: 20041116
  Receipt Date: 20041105
  Transmission Date: 20050328
  Serious: Yes (Death)
  Sender: FDA-Public Use
  Company Number: GB-JNJFOC-20041101858

PATIENT
  Sex: Female

DRUGS (2)
  1. TRAMACET [Suspect]
     Indication: PAIN
     Route: 065
  2. ACETAMINOPHEN [Concomitant]
     Indication: PAIN

REACTIONS (2)
  - FEELING ABNORMAL [None]
  - PNEUMONIA [None]
